FAERS Safety Report 19370058 (Version 1)
Quarter: 2021Q2

REPORT INFORMATION
  Report Type: Spontaneous
  Country: DE (occurrence: DE)
  Receive Date: 20210603
  Receipt Date: 20210603
  Transmission Date: 20210717
  Serious: Yes (Hospitalization)
  Sender: FDA-Public Use
  Company Number: DE-PFIZER INC-2021463082

PATIENT
  Age: 35 Year
  Sex: Female

DRUGS (1)
  1. GABAPENTIN. [Suspect]
     Active Substance: GABAPENTIN
     Indication: GENERALISED TONIC-CLONIC SEIZURE
     Dosage: 3200 MG, DAILY

REACTIONS (1)
  - Mania [Recovered/Resolved]
